FAERS Safety Report 4765599-4 (Version None)
Quarter: 2005Q3

REPORT INFORMATION
  Report Type: 
  Country: None (occurrence: None)
  Receive Date: 20050906
  Receipt Date: 20050824
  Transmission Date: 20060218
  Serious: Yes (Hospitalization, Other)
  Sender: FDA-Public Use
  Company Number: 2005120936

PATIENT
  Age: 20 Year
  Sex: Female

DRUGS (1)
  1. DOSTINEX [Suspect]
     Indication: HYPERPROLACTINAEMIA
     Dosage: 1.25 MG (1.25 MG, TWICE WEEKLY), ORAL
     Route: 048
     Dates: start: 20040701, end: 20050201

REACTIONS (6)
  - ALCOHOL INTOLERANCE [None]
  - DEPRESSION [None]
  - DIZZINESS [None]
  - HANGOVER [None]
  - MANIA [None]
  - MUSCLE TWITCHING [None]
